FAERS Safety Report 5819557-9 (Version None)
Quarter: 2008Q3

REPORT INFORMATION
  Report Type: 
  Country: None (occurrence: None)
  Receive Date: 20080723
  Receipt Date: 20080714
  Transmission Date: 20090109
  Serious: Yes (Other)
  Sender: FDA-Public Use
  Company Number: US-ELI_LILLY_AND_COMPANY-US200807002685

PATIENT
  Sex: Male

DRUGS (4)
  1. GEMZAR [Suspect]
     Indication: PANCREATIC CARCINOMA
     Dates: start: 20070101
  2. GEMZAR [Suspect]
     Dates: start: 20080401
  3. COZAAR [Concomitant]
     Indication: HYPERTENSION
     Dates: start: 20080701
  4. BUMEX [Concomitant]
     Indication: HYPERTENSION
     Dates: start: 20080701

REACTIONS (2)
  - CARBOHYDRATE ANTIGEN 19-9 INCREASED [None]
  - CARDIOMYOPATHY [None]
